FAERS Safety Report 6919076-2 (Version None)
Quarter: 2010Q3

REPORT INFORMATION
  Report Type: 
  Country: None (occurrence: None)
  Receive Date: 20100727
  Receipt Date: 20060113
  Transmission Date: 20110219
  Serious: Yes (Other)
  Sender: FDA-Public Use
  Company Number: CAR-2006-001

PATIENT
  Age: 50 Year
  Sex: Female
  Weight: 90.7194 kg

DRUGS (2)
  1. CARAFATE [Suspect]
     Dosage: 1G; QID; PO
     Route: 048
     Dates: start: 20060111
  2. PAIN MEDICATION (S) [Concomitant]

REACTIONS (1)
  - BLOOD GLUCOSE INCREASED [None]
